FAERS Safety Report 4799780-5 (Version None)
Quarter: 2005Q4

REPORT INFORMATION
  Report Type: 
  Country: None (occurrence: None)
  Receive Date: 20051012
  Receipt Date: 20051012
  Transmission Date: 20060501
  Serious: Yes (Hospitalization)
  Sender: FDA-Public Use
  Company Number: None

PATIENT
  Sex: Male
  Weight: 120.2032 kg

DRUGS (4)
  1. ADVIL [Suspect]
     Indication: PAIN
     Dosage: PO (THERAPY DATES: PRIOR TO ADMISSION)
     Route: 048
  2. MOTRIN [Suspect]
     Indication: PAIN
     Dosage: PO (THERAPY DATES: PRIOR TO ADMISSION)
  3. ZITHROMAX [Concomitant]
  4. HYDROCODONE [Concomitant]

REACTIONS (2)
  - MOUTH HAEMORRHAGE [None]
  - POST PROCEDURAL COMPLICATION [None]
